FAERS Safety Report 8604966 (Version 3)
Quarter: 2013Q2

REPORT INFORMATION
  Report Type: Report from Study
  Country: US (occurrence: US)
  Receive Date: 20120608
  Receipt Date: 20130510
  Transmission Date: 20140414
  Serious: Yes (Hospitalization)
  Sender: FDA-Public Use
  Company Number: US-TEVA-341399USA

PATIENT
  Age: 53 Year
  Sex: Male
  Weight: 61 kg

DRUGS (11)
  1. TREANDA [Suspect]
     Indication: PLASMA CELL MYELOMA
     Dosage: DAYS 1-2
     Route: 042
     Dates: start: 20120417, end: 20120418
  2. DEXAMETHASONE [Suspect]
     Dates: start: 20120417, end: 20120508
  3. LENALIDOMIDE [Suspect]
     Dates: start: 20120417, end: 20120507
  4. ACETYLSALICYLIC ACID [Concomitant]
  5. SERETIDE                           /01420901/ [Concomitant]
  6. ZOLPIDEM TARTRATE [Concomitant]
  7. BREVA [Concomitant]
  8. FLUCONAZOLE [Concomitant]
  9. LOSARTAN [Concomitant]
  10. NEPHRO-VITE                        /01719801/ [Concomitant]
  11. PROCHLORPERAZINE EDISYLATE [Concomitant]

REACTIONS (1)
  - Renal failure acute [Recovered/Resolved with Sequelae]
